FAERS Safety Report 10084810 (Version 1)
Quarter: 2014Q2

REPORT INFORMATION
  Report Type: Other
  Country: US (occurrence: US)
  Receive Date: 20140417
  Receipt Date: 20140417
  Transmission Date: 20141212
  Serious: Yes (Hospitalization)
  Sender: FDA-Public Use
  Company Number: US-NAPPMUNDI-DEU-2014-0014192

PATIENT
  Age: 60 Year
  Sex: Female

DRUGS (1)
  1. MS CONTIN TABLETS 100 MG [Suspect]
     Indication: PAIN
     Dosage: 100 MG, QID
     Route: 048

REACTIONS (2)
  - Drug withdrawal syndrome [Recovered/Resolved]
  - Stress cardiomyopathy [Recovered/Resolved]
